FAERS Safety Report 20878934 (Version 1)
Quarter: 2022Q2

REPORT INFORMATION
  Report Type: Spontaneous
  Country: US (occurrence: US)
  Receive Date: 20220526
  Receipt Date: 20220526
  Transmission Date: 20220720
  Serious: No
  Sender: FDA-Public Use
  Company Number: US-RADIUS HEALTH INC.-2021US004906

PATIENT
  Age: 63 Year
  Sex: Female

DRUGS (1)
  1. TYMLOS [Suspect]
     Active Substance: ABALOPARATIDE
     Indication: Illness
     Dosage: 80 MCG, DAILY
     Route: 058
     Dates: start: 202110

REACTIONS (4)
  - Feeling abnormal [Unknown]
  - Dysgraphia [Unknown]
  - Mental impairment [Unknown]
  - Bradykinesia [Unknown]

NARRATIVE: CASE EVENT DATE: 20211001
